FAERS Safety Report 4274177-5 (Version None)
Quarter: 2004Q1

REPORT INFORMATION
  Report Type: 
  Country: None (occurrence: None)
  Receive Date: 20040115
  Receipt Date: 20040109
  Transmission Date: 20041129
  Serious: Yes (Other)
  Sender: FDA-Public Use
  Company Number: 2003-11-1492

PATIENT
  Age: 59 Year
  Sex: Female

DRUGS (3)
  1. CLARITIN-D 24 HOUR [Suspect]
     Indication: COUGH
     Dosage: 1 TAB QD ORAL
     Route: 048
     Dates: start: 20031101
  2. CLARITIN-D 24 HOUR [Suspect]
     Indication: RHINORRHOEA
     Dosage: 1 TAB QD ORAL
     Route: 048
     Dates: start: 20031101
  3. TYLENOL PM EXTRA STRENGTH (ACETAMINPHEN/DIPHENYDRAMINE) [Concomitant]

REACTIONS (8)
  - ANXIETY [None]
  - CHEST DISCOMFORT [None]
  - CONFUSIONAL STATE [None]
  - DISORIENTATION [None]
  - DYSPNOEA [None]
  - HEADACHE [None]
  - IRRITABILITY [None]
  - PALPITATIONS [None]
